FAERS Safety Report 5024905-6 (Version None)
Quarter: 2006Q2

REPORT INFORMATION
  Report Type: 
  Country: None (occurrence: None)
  Receive Date: 20060426
  Receipt Date: 20060207
  Transmission Date: 20061013
  Serious: Yes (Other)
  Sender: FDA-Public Use
  Company Number: 2006010281

PATIENT
  Age: 70 Year
  Sex: Male
  Weight: 108.8633 kg

DRUGS (6)
  1. LYRICA [Suspect]
     Indication: DIABETIC NEUROPATHY
     Dosage: 150 MG (50 MG, 3 IN 1 D), ORAL
     Route: 048
     Dates: start: 20051230
  2. CALCIUM (CALCIUM) [Concomitant]
  3. ALL OTHER NON-THERAPEUTIC PRODUCTS (ALL OTHER NON-THERAPEUTIC PRODUCTS [Concomitant]
  4. FLAXSEED OIL (LINSEED OIL) [Concomitant]
  5. GLUCOPHAGE [Concomitant]
  6. ALL OTHER THERAPEUTIC PRODUCTS (ALL OTHER THERAPEUTIC PRODUCTS) [Concomitant]

REACTIONS (3)
  - ANORGASMIA [None]
  - MICTURITION URGENCY [None]
  - MIDDLE INSOMNIA [None]
